FAERS Safety Report 14151820 (Version 4)
Quarter: 2018Q1

REPORT INFORMATION
  Report Type: Spontaneous
  Country: GB (occurrence: GB)
  Receive Date: 20171102
  Receipt Date: 20180207
  Transmission Date: 20180508
  Serious: Yes (Disabling, Other)
  Sender: FDA-Public Use
  Company Number: PHFR2017GB008388

PATIENT
  Age: 48 Year
  Sex: Male
  Weight: 96 kg

DRUGS (7)
  1. RISPERDAL CONSTA [Interacting]
     Active Substance: RISPERIDONE
     Indication: SCHIZOPHRENIA
     Dosage: 25 MG,
     Route: 030
     Dates: start: 20100901, end: 201706
  2. RISPERIDONE. [Suspect]
     Active Substance: RISPERIDONE
     Indication: SCHIZOPHRENIA
     Dosage: 25 MG, UNK
     Route: 048
  3. RISPERIDONE. [Interacting]
     Active Substance: RISPERIDONE
     Dosage: 4 MG,
     Route: 048
     Dates: start: 201706
  4. TRAMADOL. [Concomitant]
     Active Substance: TRAMADOL
     Indication: PRODUCT USED FOR UNKNOWN INDICATION
     Route: 065
  5. FENTANYL. [Concomitant]
     Active Substance: FENTANYL
     Indication: PRODUCT USED FOR UNKNOWN INDICATION
     Route: 065
  6. PROCYCLIDINE [Concomitant]
     Active Substance: PROCYCLIDINE
     Indication: PRODUCT USED FOR UNKNOWN INDICATION
     Route: 065
  7. TERBINAFINE. [Interacting]
     Active Substance: TERBINAFINE
     Indication: DERMATOPHYTOSIS OF NAIL
     Dosage: 25 MG, UNK
     Route: 048
     Dates: start: 20170615, end: 20170715

REACTIONS (3)
  - Labelled drug-drug interaction medication error [Unknown]
  - Extrapyramidal disorder [Not Recovered/Not Resolved]
  - Jaw disorder [Recovering/Resolving]

NARRATIVE: CASE EVENT DATE: 20170630
